FAERS Safety Report 7008685-0 (Version None)
Quarter: 2010Q3

REPORT INFORMATION
  Report Type: 
  Country: None (occurrence: None)
  Receive Date: 20100922
  Receipt Date: 20100916
  Transmission Date: 20110219
  Serious: Yes (Other)
  Sender: FDA-Public Use
  Company Number: JP-MERCK-1009USA04058

PATIENT
  Age: 74 Year
  Sex: Male

DRUGS (7)
  1. JANUVIA [Suspect]
     Indication: TYPE 2 DIABETES MELLITUS
     Route: 048
     Dates: start: 20091120, end: 20100519
  2. GLUFAST [Concomitant]
     Indication: TYPE 2 DIABETES MELLITUS
     Route: 048
  3. LIPITOR [Concomitant]
     Indication: HYPERLIPIDAEMIA
     Route: 048
  4. TENORMIN [Concomitant]
     Indication: HYPERTENSION
     Dosage: DAILY DOSE UNKNOWN
     Route: 048
  5. TENORMIN [Concomitant]
     Indication: ANGINA PECTORIS
     Dosage: DAILY DOSE UNKNOWN
     Route: 048
  6. BUFFERIN [Concomitant]
     Dosage: DAILY DOSE UNKNOWN
     Route: 048
  7. DIOVAN [Concomitant]
     Indication: HYPERTENSION
     Route: 048

REACTIONS (2)
  - AUTOIMMUNE PANCREATITIS [None]
  - GLYCOSYLATED HAEMOGLOBIN INCREASED [None]
